FAERS Safety Report 21557066 (Version 1)
Quarter: 2022Q4

REPORT INFORMATION
  Report Type: Spontaneous
  Country: US (occurrence: US)
  Receive Date: 20221104
  Receipt Date: 20221104
  Transmission Date: 20230112
  Serious: Yes (Other)
  Sender: FDA-Public Use
  Company Number: US-IGSA-BIG0019431

PATIENT
  Age: 58 Year
  Sex: Female
  Weight: 89.342 kg

DRUGS (12)
  1. PROLASTIN-C LIQUID [Suspect]
     Active Substance: .ALPHA.1-PROTEINASE INHIBITOR HUMAN
     Indication: Alpha-1 antitrypsin deficiency
     Dosage: 5280 MILLIGRAM, Q.WK.
     Route: 042
     Dates: start: 20220729
  2. PROLASTIN-C LIQUID [Suspect]
     Active Substance: .ALPHA.1-PROTEINASE INHIBITOR HUMAN
     Dosage: 5280 MILLIGRAM, Q.WK.
     Route: 042
     Dates: start: 20220617
  3. PROLASTIN-C LIQUID [Suspect]
     Active Substance: .ALPHA.1-PROTEINASE INHIBITOR HUMAN
     Dosage: 5280 MILLIGRAM, Q.WK.
     Route: 042
     Dates: start: 20220624
  4. PROLASTIN-C LIQUID [Suspect]
     Active Substance: .ALPHA.1-PROTEINASE INHIBITOR HUMAN
     Dosage: 5340 MILLIGRAM, Q.WK.
     Route: 042
     Dates: start: 20190816
  5. BREO ELLIPTA [Concomitant]
     Active Substance: FLUTICASONE FUROATE\VILANTEROL TRIFENATATE
  6. INCRUSE ELLIPTA [Concomitant]
     Active Substance: UMECLIDINIUM BROMIDE
  7. VENTOLIN HFA [Concomitant]
     Active Substance: ALBUTEROL SULFATE
  8. LORAZEPAM [Concomitant]
     Active Substance: LORAZEPAM
  9. FENOFIBRATE [Concomitant]
     Active Substance: FENOFIBRATE
  10. LEVOTHYROXINE SODIUM [Concomitant]
     Active Substance: LEVOTHYROXINE SODIUM
  11. HEPARIN [Concomitant]
     Active Substance: HEPARIN SODIUM
     Dosage: 100 ?G/ML
  12. LIDOCAINE\PRILOCAINE [Concomitant]
     Active Substance: LIDOCAINE\PRILOCAINE

REACTIONS (11)
  - Chest discomfort [Not Recovered/Not Resolved]
  - Throat irritation [Recovering/Resolving]
  - Blood pressure increased [Recovering/Resolving]
  - Anxiety [Not Recovered/Not Resolved]
  - Chills [Not Recovered/Not Resolved]
  - Tremor [Recovering/Resolving]
  - Hyperhidrosis [Recovering/Resolving]
  - Catheter site infection [Recovering/Resolving]
  - Tachycardia [Recovering/Resolving]
  - Headache [Not Recovered/Not Resolved]
  - Dyspnoea [Not Recovered/Not Resolved]

NARRATIVE: CASE EVENT DATE: 20220618
